FAERS Safety Report 15628235 (Version 2)
Quarter: 2020Q4

REPORT INFORMATION
  Report Type: Report from Study
  Country: US (occurrence: US)
  Receive Date: 20181116
  Receipt Date: 20201222
  Transmission Date: 20210113
  Serious: Yes (Other)
  Sender: FDA-Public Use
  Company Number: US-JAZZ-2018-US-011238

PATIENT
  Sex: Female

DRUGS (39)
  1. FUROSEMIDE. [Concomitant]
     Active Substance: FUROSEMIDE
  2. GLUCOSAMINE CHONDROINATO [Concomitant]
  3. LEVOTHYROXINE. [Concomitant]
     Active Substance: LEVOTHYROXINE
  4. DHA [Concomitant]
     Active Substance: DIETARY SUPPLEMENT
  5. PROAIR HFA [Concomitant]
     Active Substance: ALBUTEROL SULFATE
  6. CORTISONE ACETATE. [Concomitant]
     Active Substance: CORTISONE ACETATE
  7. DULOXETINE HCL [Concomitant]
     Active Substance: DULOXETINE HYDROCHLORIDE
  8. LIOTHYRONINE SOD. [Concomitant]
  9. NEXIUM 24HR [Concomitant]
     Active Substance: ESOMEPRAZOLE MAGNESIUM
  10. XYREM [Suspect]
     Active Substance: SODIUM OXYBATE
     Dosage: 3 G, BID
     Route: 048
     Dates: start: 201712, end: 2018
  11. BUPROPION HCL [Concomitant]
     Active Substance: BUPROPION HYDROCHLORIDE
  12. CETIRIZINE HCL [Concomitant]
     Active Substance: CETIRIZINE HYDROCHLORIDE
  13. ESTROVEN [Concomitant]
     Active Substance: DIETARY SUPPLEMENT
  14. GABAPENTIN. [Concomitant]
     Active Substance: GABAPENTIN
  15. MELATONIN [Concomitant]
     Active Substance: MELATONIN
  16. TIZANIDINE HCL [Concomitant]
     Active Substance: TIZANIDINE HYDROCHLORIDE
  17. ALBUTEROL SULFATE. [Concomitant]
     Active Substance: ALBUTEROL SULFATE
  18. GUAIFENESIN. [Concomitant]
     Active Substance: GUAIFENESIN
  19. MALIC ACID [Concomitant]
     Active Substance: MALIC ACID
  20. ZOSTAVAX [Concomitant]
     Active Substance: VARICELLA-ZOSTER VIRUS STRAIN OKA/MERCK LIVE ANTIGEN
  21. HYDROCODONE BITARTRATE AND ACETAMINOPHEN [Concomitant]
     Active Substance: ACETAMINOPHEN\HYDROCODONE BITARTRATE
  22. HYDROCORTISONE. [Concomitant]
     Active Substance: HYDROCORTISONE
  23. LYSINE [Concomitant]
     Active Substance: LYSINE
  24. MANGANESE [Concomitant]
     Active Substance: MANGANESE CHLORIDE
  25. MODAFINIL. [Concomitant]
     Active Substance: MODAFINIL
  26. VITAMIN C ACID [Concomitant]
     Active Substance: ASCORBIC ACID
  27. RANITIDINE. [Concomitant]
     Active Substance: RANITIDINE
  28. CHONDROITIN SULFATE [Concomitant]
     Active Substance: CHONDROITIN SULFATE (BOVINE)
  29. NAPROXEN. [Concomitant]
     Active Substance: NAPROXEN
  30. VITAMIN D3 [Concomitant]
     Active Substance: CHOLECALCIFEROL
  31. XYREM [Suspect]
     Active Substance: SODIUM OXYBATE
     Indication: NARCOLEPSY
     Dosage: 2.25 G, BID
     Route: 048
     Dates: start: 201711, end: 201712
  32. ADVAIR HFA [Concomitant]
     Active Substance: FLUTICASONE PROPIONATE\SALMETEROL XINAFOATE
  33. BYSTOLIC [Concomitant]
     Active Substance: NEBIVOLOL HYDROCHLORIDE
  34. COENZYME Q10 [Concomitant]
     Active Substance: DIETARY SUPPLEMENT\UBIDECARENONE
  35. DHEA [Concomitant]
     Active Substance: PRASTERONE
  36. LICHEN [Concomitant]
  37. LORAZEPAM. [Concomitant]
     Active Substance: LORAZEPAM
  38. METHYLPHENIDATE. [Concomitant]
     Active Substance: METHYLPHENIDATE
  39. VITAMIN B-6 [Concomitant]
     Active Substance: PYRIDOXINE

REACTIONS (3)
  - Sleep apnoea syndrome [Not Recovered/Not Resolved]
  - Fibromyalgia [Recovering/Resolving]
  - Pain [Not Recovered/Not Resolved]
